FAERS Safety Report 24113320 (Version 1)
Quarter: 2024Q3

REPORT INFORMATION
  Report Type: Report from Study
  Country: US (occurrence: US)
  Receive Date: 20240719
  Receipt Date: 20240719
  Transmission Date: 20241016
  Serious: Yes (Other)
  Sender: TEVA
  Company Number: US-TEVA-VS-3198950

PATIENT
  Age: 65 Year
  Sex: Male

DRUGS (1)
  1. AUSTEDO [Suspect]
     Active Substance: DEUTETRABENAZINE
     Indication: Tardive dyskinesia
     Route: 065
     Dates: start: 20240409, end: 20240609

REACTIONS (3)
  - Dyspnoea [Recovered/Resolved]
  - Tardive dyskinesia [Unknown]
  - Insomnia [Unknown]

NARRATIVE: CASE EVENT DATE: 20240501
